FAERS Safety Report 6066281-6 (Version None)
Quarter: 2009Q1

REPORT INFORMATION
  Report Type: 
  Country: None (occurrence: None)
  Receive Date: 20090130
  Receipt Date: 20090126
  Transmission Date: 20090719
  Serious: Yes (Hospitalization)
  Sender: FDA-Public Use
  Company Number: 2009JP000447

PATIENT
  Age: 74 Year
  Sex: Male

DRUGS (6)
  1. TACROLIMUS [Suspect]
     Dosage: 1 MG, BID 0.5 MG, BID
  2. MYCOPHENOLATE MOFETIL [Concomitant]
  3. PREDNISOLONE [Concomitant]
  4. CEFEPMIE (CEFEPIME) [Concomitant]
  5. CEFTRIAXONE [Concomitant]
  6. LEVOTHYROXINE SODIUM [Concomitant]

REACTIONS (24)
  - ABDOMINAL TENDERNESS [None]
  - ALANINE AMINOTRANSFERASE INCREASED [None]
  - AORTIC ANEURYSM RUPTURE [None]
  - ASPARTATE AMINOTRANSFERASE INCREASED [None]
  - BLOOD BILIRUBIN INCREASED [None]
  - BLOOD CREATININE INCREASED [None]
  - BLOOD CULTURE POSITIVE [None]
  - BLOOD LACTATE DEHYDROGENASE INCREASED [None]
  - BLOOD PRESSURE DECREASED [None]
  - BLOOD UREA INCREASED [None]
  - CARDIAC MURMUR [None]
  - CHEST PAIN [None]
  - CHILLS [None]
  - CULTURE STOOL POSITIVE [None]
  - GASTROINTESTINAL SOUNDS ABNORMAL [None]
  - HAEMODYNAMIC INSTABILITY [None]
  - HEART RATE INCREASED [None]
  - MYCOTIC ANEURYSM [None]
  - PLATELET COUNT DECREASED [None]
  - POST PROCEDURAL HYPOTHYROIDISM [None]
  - PYREXIA [None]
  - SALMONELLOSIS [None]
  - SCAN GALLIUM ABNORMAL [None]
  - THYROID GLAND ABSCESS [None]
